FAERS Safety Report 6369580-3 (Version None)
Quarter: 2009Q3

REPORT INFORMATION
  Report Type: 
  Country: None (occurrence: None)
  Receive Date: 20090923
  Receipt Date: 20090914
  Transmission Date: 20100115
  Serious: Yes (Other)
  Sender: FDA-Public Use
  Company Number: PHEH2009US10891

PATIENT
  Sex: Male

DRUGS (5)
  1. CLOZARIL [Suspect]
     Indication: SCHIZOPHRENIA
     Dosage: 450 MG, QD
     Route: 048
  2. TRAZODONE [Concomitant]
  3. DEPAKOTE [Concomitant]
  4. ZYPREXA [Concomitant]
  5. COGENTIN [Concomitant]

REACTIONS (1)
  - LEUKAEMIA [None]
